FAERS Safety Report 23800747 (Version 1)
Quarter: 2024Q2

REPORT INFORMATION
  Report Type: Report from Study
  Country: DE (occurrence: DE)
  Receive Date: 20240430
  Receipt Date: 20240430
  Transmission Date: 20240716
  Serious: Yes (Hospitalization)
  Sender: FDA-Public Use
  Company Number: DE-002147023-NVSC2019DE046908

PATIENT
  Sex: Female

DRUGS (2)
  1. METHOTREXATE [Suspect]
     Active Substance: METHOTREXATE
     Indication: Product used for unknown indication
     Dosage: 10 MG, QW
     Route: 065
  2. ERELZI [Suspect]
     Active Substance: ETANERCEPT-SZZS
     Indication: Rheumatoid arthritis
     Dosage: 50 MG, QW (BATCH NUMBER WAS UNKNOWN)
     Route: 065
     Dates: start: 201809

REACTIONS (5)
  - Arthritis [Unknown]
  - Osteoarthritis [Unknown]
  - Plantar fasciitis [Unknown]
  - Tendon injury [Unknown]
  - Laryngitis [Recovered/Resolved]

NARRATIVE: CASE EVENT DATE: 20190506
